FAERS Safety Report 6865755-5 (Version None)
Quarter: 2010Q3

REPORT INFORMATION
  Report Type: 
  Country: None (occurrence: None)
  Receive Date: 20100721
  Receipt Date: 20090406
  Transmission Date: 20110219
  Serious: No
  Sender: FDA-Public Use
  Company Number: US-PFIZER INC-2008036294

PATIENT
  Sex: Female
  Weight: 63.636 kg

DRUGS (2)
  1. CHANTIX [Suspect]
     Indication: SMOKING CESSATION THERAPY
     Dosage: 1 MG, 2X/DAY
     Dates: start: 20080325
  2. LORAZEPAM [Concomitant]
     Indication: ANXIETY

REACTIONS (4)
  - ANXIETY [None]
  - CONSTIPATION [None]
  - DEPRESSION [None]
  - FEELING JITTERY [None]
